FAERS Safety Report 10182518 (Version 2)
Quarter: 2014Q3

REPORT INFORMATION
  Report Type: Spontaneous
  Country: US (occurrence: None)
  Receive Date: 20140516
  Receipt Date: 20140808
  Transmission Date: 20150326
  Serious: Yes (Congenital Anomaly, Other)
  Sender: FDA-Public Use
  Company Number: 2014AP002923

PATIENT
  Age: 1 Day
  Sex: Female
  Weight: 2 kg

DRUGS (2)
  1. PAXIL [Suspect]
     Active Substance: PAROXETINE HYDROCHLORIDE
     Route: 064
  2. ZANTAC [Concomitant]
     Active Substance: RANITIDINE HYDROCHLORIDE

REACTIONS (11)
  - Oxygen saturation decreased [None]
  - Cerebellar hypoplasia [None]
  - Dysmorphism [None]
  - Developmental delay [None]
  - Foetal exposure during pregnancy [None]
  - Hypotelorism of orbit [None]
  - Chondrodystrophy [None]
  - Nasal obstruction [None]
  - Choanal atresia [None]
  - Congenital anomaly [None]
  - Injury [None]

NARRATIVE: CASE EVENT DATE: 20020130
